FAERS Safety Report 15276672 (Version 1)
Quarter: 2018Q4

REPORT INFORMATION
  Report Type: Spontaneous
  Country: DE (occurrence: DE)
  Receive Date: 20180814
  Receipt Date: 20180814
  Transmission Date: 20190204
  Serious: Yes (Hospitalization)
  Sender: FDA-Public Use
  Company Number: DE-ELI_LILLY_AND_COMPANY-DE201808001330

PATIENT
  Sex: Male

DRUGS (2)
  1. FX PASSAGE SL [Interacting]
     Active Substance: MAGNESIUM SULFATE
     Indication: PRODUCT USED FOR UNKNOWN INDICATION
     Dosage: 15 G, UNKNOWN
     Route: 048
  2. TESTOSTERONE SOLUTION (LY900011) [Suspect]
     Active Substance: TESTOSTERONE
     Indication: PRODUCT USED FOR UNKNOWN INDICATION
     Dosage: 1000 MG, UNKNOWN
     Route: 065

REACTIONS (5)
  - Pruritus [Not Recovered/Not Resolved]
  - Drug interaction [Unknown]
  - Facial paralysis [Not Recovered/Not Resolved]
  - Heart rate irregular [Not Recovered/Not Resolved]
  - Visual impairment [Not Recovered/Not Resolved]
